FAERS Safety Report 4646064-1 (Version None)
Quarter: 2005Q2

REPORT INFORMATION
  Report Type: 
  Country: None (occurrence: None)
  Receive Date: 20050427
  Receipt Date: 20050201
  Transmission Date: 20051028
  Serious: Yes (Congenital Anomaly)
  Sender: FDA-Public Use
  Company Number: US-ABBOTT-05P-163-0289069-00

PATIENT
  Sex: Male
  Weight: 0.364 kg

DRUGS (3)
  1. KALETRA [Suspect]
     Indication: DRUG EXPOSURE DURING PREGNANCY
  2. LAMIVUDINE [Suspect]
     Indication: DRUG EXPOSURE DURING PREGNANCY
  3. STAVUDINE [Suspect]
     Indication: DRUG EXPOSURE DURING PREGNANCY

REACTIONS (9)
  - CEREBRAL ATROPHY CONGENITAL [None]
  - CEREBRAL VENTRICLE DILATATION [None]
  - CONGENITAL ANOMALY [None]
  - DRUG EXPOSURE DURING PREGNANCY [None]
  - MECONIUM STAIN [None]
  - MICROCEPHALY [None]
  - PENILE SIZE REDUCED [None]
  - SMALL FOR DATES BABY [None]
  - UMBILICAL CORD ABNORMALITY [None]
